FAERS Safety Report 4495481-1 (Version None)
Quarter: 2004Q4

REPORT INFORMATION
  Report Type: 
  Country: None (occurrence: None)
  Receive Date: 20041104
  Receipt Date: 20041018
  Transmission Date: 20050328
  Serious: Yes (Death)
  Sender: FDA-Public Use
  Company Number: 2004-BP-10196RO

PATIENT
  Age: 61 Year
  Sex: 0

DRUGS (3)
  1. MORPHINE SUL TAB [Suspect]
  2. ACETAMINOPHEN + CODEINE PHOSPHATE TABLETS USP, 300 MG/30 MG (GALENIC / [Suspect]
  3. LORAZEPAM INTENSOL [Suspect]

REACTIONS (2)
  - COMPLETED SUICIDE [None]
  - MULTIPLE DRUG OVERDOSE [None]
